FAERS Safety Report 15206505 (Version 2)
Quarter: 2018Q3

REPORT INFORMATION
  Report Type: Spontaneous
  Country: US (occurrence: US)
  Receive Date: 20180727
  Receipt Date: 20180918
  Transmission Date: 20181010
  Serious: No
  Sender: FDA-Public Use
  Company Number: US-PFIZER INC-2017479725

PATIENT
  Age: 38 Year
  Sex: Female
  Weight: 70.31 kg

DRUGS (3)
  1. LYRICA [Suspect]
     Active Substance: PREGABALIN
     Indication: BACK PAIN
     Dosage: 50 MG, 2X/DAY
     Route: 048
     Dates: start: 2018, end: 201806
  2. LYRICA [Suspect]
     Active Substance: PREGABALIN
     Indication: MAMMOPLASTY
  3. LYRICA [Suspect]
     Active Substance: PREGABALIN
     Indication: SCOLIOSIS

REACTIONS (2)
  - Product use in unapproved indication [Unknown]
  - Pain [Unknown]
